FAERS Safety Report 4498728-0 (Version None)
Quarter: 2004Q4

REPORT INFORMATION
  Report Type: 
  Country: None (occurrence: None)
  Receive Date: 20041108
  Receipt Date: 20041025
  Transmission Date: 20050328
  Serious: Yes (Hospitalization)
  Sender: FDA-Public Use
  Company Number: F01200403335

PATIENT
  Age: 79 Year
  Sex: Male
  Weight: 83.6 kg

DRUGS (2)
  1. PACLITAXEL [Suspect]
     Indication: NON-SMALL CELL LUNG CANCER
     Dosage: 225 MG/M2 Q3W INTRAVENOUS NOS
     Route: 042
     Dates: start: 20041021, end: 20041021
  2. CARBOPLATIN [Suspect]
     Dosage: DOSE CALCULATED TO PRODUCE AN AUC OF 6.0 OVER 30-60 MINUTES - INTRAVENOUS NOS
     Route: 042
     Dates: start: 20041021, end: 20041021

REACTIONS (7)
  - ANAEMIA [None]
  - CEREBRAL ATROPHY [None]
  - CEREBROVASCULAR DISORDER [None]
  - DIZZINESS [None]
  - HYPERGLYCAEMIA [None]
  - HYPONATRAEMIA [None]
  - SYNCOPE [None]
